FAERS Safety Report 6052207-8 (Version None)
Quarter: 2009Q1

REPORT INFORMATION
  Report Type: 
  Country: None (occurrence: None)
  Receive Date: 20090121
  Receipt Date: 20090107
  Transmission Date: 20090719
  Serious: Yes (Death)
  Sender: FDA-Public Use
  Company Number: 138420

PATIENT
  Age: 56 Year
  Sex: Male

DRUGS (13)
  1. CARBOPLATIN [Suspect]
     Indication: PROSTATE CANCER
  2. PACLITAXEL [Suspect]
     Indication: PROSTATE CANCER
  3. DEXAMETHASONE TAB [Suspect]
     Indication: PROSTATE CANCER
     Dosage: 16 MG,
  4. THALIDOMIDE [Suspect]
     Indication: PROSTATE CANCER METASTATIC
     Dosage: 100 MG,
  5. MITOXANTRONE [Suspect]
     Indication: PROSTATE CANCER
  6. PREDNISONE [Suspect]
     Indication: PROSTATE CANCER
  7. (ESTRAMUSTINE) [Suspect]
     Indication: PROSTATE CANCER
  8. ETOPOSIDE [Suspect]
     Indication: PROSTATE CANCER
  9. EPOGEN [Suspect]
     Indication: PROSTATE CANCER METASTATIC
     Dosage: 10 MU, 3 TIMES A WEEK,
  10. ZOLEDRONIC ACID [Concomitant]
  11. MORPHINE [Concomitant]
  12. (SALICYLATES NOS) [Concomitant]
  13. (BETA BLOCKING AGENTS) [Concomitant]

REACTIONS (8)
  - DISSEMINATED INTRAVASCULAR COAGULATION [None]
  - DRUG INEFFECTIVE [None]
  - METASTASES TO BONE [None]
  - METASTASES TO CENTRAL NERVOUS SYSTEM [None]
  - METASTASES TO LIVER [None]
  - NERVOUS SYSTEM DISORDER [None]
  - PERFORMANCE STATUS DECREASED [None]
  - RENAL IMPAIRMENT [None]
